FAERS Safety Report 6833503-0 (Version None)
Quarter: 2010Q3

REPORT INFORMATION
  Report Type: 
  Country: None (occurrence: None)
  Receive Date: 20100712
  Receipt Date: 20070323
  Transmission Date: 20110219
  Serious: No
  Sender: FDA-Public Use
  Company Number: US-PFIZER INC-2007025289

PATIENT
  Sex: Female
  Weight: 99.79 kg

DRUGS (9)
  1. CHANTIX [Suspect]
     Indication: SMOKING CESSATION THERAPY
     Dates: start: 20070314
  2. PREVACID [Concomitant]
  3. BENTYL [Concomitant]
  4. ATENOLOL [Concomitant]
  5. CRESTOR [Concomitant]
  6. SOMA [Concomitant]
  7. BACLOFEN [Concomitant]
  8. VICODIN [Concomitant]
  9. ZOLOFT [Concomitant]

REACTIONS (2)
  - DIARRHOEA [None]
  - FLATULENCE [None]
